FAERS Safety Report 11707856 (Version 1)
Quarter: 2015Q4

REPORT INFORMATION
  Report Type: Spontaneous
  Country: US (occurrence: US)
  Receive Date: 20151104
  Receipt Date: 20151104
  Transmission Date: 20160304
  Serious: No
  Sender: FDA-Public Use
  Company Number: US-ELI_LILLY_AND_COMPANY-US201107004327

PATIENT
  Age: 79 Year
  Sex: Female

DRUGS (1)
  1. FORTEO [Suspect]
     Active Substance: TERIPARATIDE
     Indication: OSTEOPOROSIS
     Dosage: 20 UG, QD
     Dates: start: 20110610, end: 20110630

REACTIONS (11)
  - Bone pain [Recovered/Resolved]
  - Decreased appetite [Unknown]
  - Headache [Unknown]
  - Nausea [Unknown]
  - Musculoskeletal pain [Unknown]
  - Muscle spasms [Recovered/Resolved]
  - Sleep disorder due to a general medical condition [Unknown]
  - Eating disorder [Unknown]
  - Weight decreased [Unknown]
  - Intentional product misuse [Unknown]
  - Pain in extremity [Unknown]

NARRATIVE: CASE EVENT DATE: 201106
